FAERS Safety Report 12299138 (Version 1)
Quarter: 2016Q2

REPORT INFORMATION
  Report Type: Spontaneous
  Country: US (occurrence: None)
  Receive Date: 20160422
  Receipt Date: 20160422
  Transmission Date: 20160815
  Serious: Yes (Hospitalization)
  Sender: FDA-Public Use
  Company Number: None

PATIENT
  Age: 38 Year
  Sex: Female
  Weight: 70.31 kg

DRUGS (7)
  1. SYNTHROID [Concomitant]
     Active Substance: LEVOTHYROXINE SODIUM
  2. NAPROXEN. [Concomitant]
     Active Substance: NAPROXEN
  3. VAGINA STEROID GEL [Concomitant]
  4. RESTASIS [Concomitant]
     Active Substance: CYCLOSPORINE
  5. EYE STEROID DROPS [Concomitant]
  6. HUMIRA [Suspect]
     Active Substance: ADALIMUMAB
     Indication: ANKYLOSING SPONDYLITIS
     Dosage: 1 INJECTION 1 EVERY 2 WEEKS INTO THE MUSCLE
     Route: 030
     Dates: start: 20160226, end: 20160317
  7. TYLENOL [Concomitant]
     Active Substance: ACETAMINOPHEN

REACTIONS (19)
  - Rash generalised [None]
  - Skin exfoliation [None]
  - Erythema [None]
  - Vaginal ulceration [None]
  - Wrong technique in product usage process [None]
  - Photophobia [None]
  - Eye disorder [None]
  - Retinal tear [None]
  - Vulvovaginal rash [None]
  - Eating disorder [None]
  - Eye discharge [None]
  - Anosmia [None]
  - Oral mucosal eruption [None]
  - Accidental underdose [None]
  - Lip swelling [None]
  - Rash [None]
  - Eye swelling [None]
  - Ocular hyperaemia [None]
  - Ageusia [None]

NARRATIVE: CASE EVENT DATE: 20160301
